FAERS Safety Report 11788636 (Version 1)
Quarter: 2015Q4

REPORT INFORMATION
  Report Type: Report from Study
  Country: CA (occurrence: CA)
  Receive Date: 20151201
  Receipt Date: 20151201
  Transmission Date: 20160305
  Serious: Yes (Death)
  Sender: FDA-Public Use
  Company Number: CA-ROCHE-1670076

PATIENT

DRUGS (9)
  1. BUSULFAN [Concomitant]
     Active Substance: BUSULFAN
  2. RITUXIMAB [Suspect]
     Active Substance: RITUXIMAB
     Indication: CENTRAL NERVOUS SYSTEM LYMPHOMA
     Dosage: EVERY 2 WEEKS
     Route: 042
     Dates: start: 200612
  3. CYCLOPHOSPHAMIDE. [Concomitant]
     Active Substance: CYCLOPHOSPHAMIDE
  4. TEMOZOLOMIDE. [Concomitant]
     Active Substance: TEMOZOLOMIDE
  5. METHOTREXATE [Suspect]
     Active Substance: METHOTREXATE
     Indication: CENTRAL NERVOUS SYSTEM LYMPHOMA
     Dosage: EVERY 2 WEEKS
     Route: 065
  6. PREDNISONE. [Concomitant]
     Active Substance: PREDNISONE
  7. THIOTEPA. [Concomitant]
     Active Substance: THIOTEPA
  8. DOXORUBICIN [Concomitant]
     Active Substance: DOXORUBICIN
  9. VINCRISTINE [Concomitant]
     Active Substance: VINCRISTINE

REACTIONS (2)
  - Death [Fatal]
  - Infection [Fatal]
